FAERS Safety Report 8589409-2 (Version None)
Quarter: 2012Q3

REPORT INFORMATION
  Report Type: 
  Country: None (occurrence: None)
  Receive Date: 20120813
  Receipt Date: 20120802
  Transmission Date: 20120928
  Serious: Yes (Other)
  Sender: FDA-Public Use
  Company Number: FR-ASTRAZENECA-2012SE55006

PATIENT
  Age: 42 Year
  Sex: Female
  Weight: 96 kg

DRUGS (9)
  1. MICONAZOLE [Concomitant]
  2. DELURSAN [Concomitant]
     Route: 048
  3. NICOTINE [Concomitant]
     Indication: EX-TOBACCO USER
     Route: 048
     Dates: start: 20100101
  4. NEXIUM [Concomitant]
     Route: 048
  5. LITHIUM CARBONATE [Concomitant]
     Route: 048
  6. LEVOTHYROXINE SODIUM [Concomitant]
     Route: 048
  7. SEROQUEL [Suspect]
     Indication: BIPOLAR DISORDER
     Route: 048
  8. SEROQUEL [Suspect]
     Route: 048
     Dates: start: 20120401
  9. TOCOPHEROL CONCENTRATE CAP [Concomitant]
     Route: 048

REACTIONS (7)
  - ALANINE AMINOTRANSFERASE INCREASED [None]
  - BLOOD TRIGLYCERIDES INCREASED [None]
  - BLOOD CHOLESTEROL INCREASED [None]
  - EOSINOPHIL COUNT INCREASED [None]
  - WEIGHT INCREASED [None]
  - MALAISE [None]
  - ASPARTATE AMINOTRANSFERASE INCREASED [None]
